FAERS Safety Report 9743232 (Version 1)
Quarter: 2013Q4

REPORT INFORMATION
  Report Type: Spontaneous
  Country: US (occurrence: US)
  Receive Date: 20131210
  Receipt Date: 20131210
  Transmission Date: 20140711
  Serious: No
  Sender: FDA-Public Use
  Company Number: US-GILEAD-2009-0025079

PATIENT
  Sex: Female
  Weight: 126.1 kg

DRUGS (13)
  1. LETAIRIS [Suspect]
     Indication: PULMONARY ARTERIAL HYPERTENSION
     Route: 048
     Dates: start: 20090720, end: 20091026
  2. ISOSORBIDE MN [Concomitant]
  3. LASIX [Concomitant]
  4. ENALAPRIL MALEATE [Concomitant]
  5. METFORMIN HCL [Concomitant]
  6. CLOTRIMAZOLE-BETAMETHASONE [Concomitant]
  7. ATENOLOL [Concomitant]
  8. SIMVASTATIN [Concomitant]
  9. TYLENOL [Concomitant]
  10. SPIRIVA [Concomitant]
  11. ACTOS [Concomitant]
  12. PLAVIX [Concomitant]
  13. GLIPIZIDE [Concomitant]

REACTIONS (6)
  - Tinnitus [Unknown]
  - Dyspnoea [Unknown]
  - Local swelling [Unknown]
  - Nasal congestion [Unknown]
  - Headache [Recovering/Resolving]
  - Flushing [Recovering/Resolving]
